FAERS Safety Report 7850022-3 (Version None)
Quarter: 2011Q4

REPORT INFORMATION
  Report Type: 
  Country: None (occurrence: None)
  Receive Date: 20111021
  Receipt Date: 20111007
  Transmission Date: 20120403
  Serious: Yes (Death, Hospitalization)
  Sender: FDA-Public Use
  Company Number: FK201102225

PATIENT
  Age: 78 Year
  Sex: Male
  Weight: 82 kg

DRUGS (11)
  1. DOMPERIDONE (DOMPERIDONE) (DOMPERIDONE) [Concomitant]
  2. CAPECITABIN (CAPECITABINE) (CAPECITABINE) [Concomitant]
  3. DEXAMETHASONE [Concomitant]
  4. ENOXAPARIN (ENOXAPARIN) (ENOXAPARIN) [Concomitant]
  5. MORPHINE [Concomitant]
  6. ONDANSETRON [Concomitant]
  7. PARACETAMOL (PARACETAMOL) (PARACETAMOL) [Concomitant]
  8. LOPERAMIDE (LOPERAMIDE) (LOPERAMIDE) [Concomitant]
  9. OXALIPLATIN [Suspect]
     Indication: COLORECTAL CANCER
     Dosage: 170 MG, 9 IN 5 M, INTRAVENOUS
     Route: 042
     Dates: start: 20101201
  10. ROSUVASTATIN [Concomitant]
  11. TRAMADOL HCL [Concomitant]

REACTIONS (3)
  - RESPIRATORY FAILURE [None]
  - PULMONARY FIBROSIS [None]
  - PYREXIA [None]
